FAERS Safety Report 25335761 (Version 1)
Quarter: 2025Q2

REPORT INFORMATION
  Report Type: Spontaneous
  Country: US (occurrence: None)
  Receive Date: 20250519
  Receipt Date: 20250519
  Transmission Date: 20250716
  Serious: Yes (Hospitalization)
  Sender: FDA-CTU
  Company Number: None

PATIENT
  Age: 78 Year
  Sex: Male

DRUGS (1)
  1. TETRABENAZINE [Suspect]
     Active Substance: TETRABENAZINE
     Indication: Dyskinesia
     Dosage: 25 MG 3 TIMES A DAY ORAL ?
     Route: 048
     Dates: start: 20250115

REACTIONS (3)
  - Seizure [None]
  - Urinary tract infection [None]
  - Blood glucose abnormal [None]

NARRATIVE: CASE EVENT DATE: 20250311
